FAERS Safety Report 10388614 (Version 2)
Quarter: 2014Q3

REPORT INFORMATION
  Report Type: Spontaneous
  Country: US (occurrence: US)
  Receive Date: 20140815
  Receipt Date: 20140815
  Transmission Date: 20150326
  Serious: Yes (Hospitalization, Other)
  Sender: FDA-Public Use
  Company Number: US-009507513-2010SP057916

PATIENT
  Sex: Female
  Weight: 67.13 kg

DRUGS (1)
  1. NUVARING [Suspect]
     Active Substance: ETHINYL ESTRADIOL\ETONOGESTREL
     Indication: CONTRACEPTION
     Dosage: UNK
     Route: 067
     Dates: start: 200808, end: 20081111

REACTIONS (10)
  - Vaginal odour [Unknown]
  - Incorrect drug administration duration [Unknown]
  - Pain [Unknown]
  - Vaginal discharge [Unknown]
  - Pulmonary embolism [Unknown]
  - Angina pectoris [Unknown]
  - Pleuritic pain [Not Recovered/Not Resolved]
  - Urine output decreased [Unknown]
  - Migraine [Unknown]
  - Micturition urgency [Unknown]

NARRATIVE: CASE EVENT DATE: 2008
